FAERS Safety Report 24206847 (Version 1)
Quarter: 2024Q3

REPORT INFORMATION
  Report Type: Spontaneous
  Country: US (occurrence: US)
  Receive Date: 20240813
  Receipt Date: 20240813
  Transmission Date: 20241017
  Serious: Yes (Death, Other)
  Sender: MERCK
  Company Number: US-009507513-2408USA003147

PATIENT
  Age: 71 Year
  Sex: Female

DRUGS (1)
  1. WELIREG [Suspect]
     Active Substance: BELZUTIFAN
     Indication: Renal cell carcinoma
     Dosage: 120 MILLIGRAM, QD
     Route: 048
     Dates: start: 202406

REACTIONS (3)
  - Death [Fatal]
  - Abdominal pain upper [Unknown]
  - Adverse event [Unknown]

NARRATIVE: CASE EVENT DATE: 20240601
